FAERS Safety Report 4285848-9 (Version None)
Quarter: 2004Q1

REPORT INFORMATION
  Report Type: 
  Country: None (occurrence: None)
  Receive Date: 20040203
  Receipt Date: 20040123
  Transmission Date: 20041129
  Serious: No
  Sender: FDA-Public Use
  Company Number: 2004PK00172

PATIENT
  Age: 70 Year
  Sex: Male

DRUGS (7)
  1. SEROQUEL [Suspect]
     Dosage: 50-125 MG
     Dates: start: 20031110, end: 20031201
  2. DEPAKENE [Suspect]
     Indication: PROPHYLAXIS
     Dosage: 1200-2000 MG/D
     Dates: start: 19930101, end: 20031201
  3. QUILONORM RETARD [Concomitant]
  4. DIAMICRON [Concomitant]
  5. ASPIRIN [Concomitant]
  6. ACTOS ^LILLY^ [Concomitant]
  7. XATRAL [Concomitant]

REACTIONS (1)
  - LEUKOPENIA [None]
